FAERS Safety Report 20695153 (Version 2)
Quarter: 2022Q2

REPORT INFORMATION
  Report Type: Spontaneous
  Country: US (occurrence: US)
  Receive Date: 20220411
  Receipt Date: 20220510
  Transmission Date: 20220721
  Serious: Yes (Hospitalization)
  Sender: FDA-Public Use
  Company Number: US-LUPIN PHARMACEUTICALS INC.-2022-05295

PATIENT
  Age: 35 Year
  Sex: Female

DRUGS (10)
  1. LEVOTHYROXINE [Suspect]
     Active Substance: LEVOTHYROXINE
     Indication: Autoimmune thyroiditis
     Dosage: 225 MICROGRAM, QD
     Route: 065
  2. LEVOTHYROXINE [Suspect]
     Active Substance: LEVOTHYROXINE
     Indication: Hypothyroidism
  3. INSULIN LISPRO [Suspect]
     Active Substance: INSULIN LISPRO
     Indication: Type 1 diabetes mellitus
     Dosage: ADMINISTERED VIA INSULIN PUMP (TOTAL OF 34 UNITS DAILY)
     Route: 065
  4. PREDNISONE [Suspect]
     Active Substance: PREDNISONE
     Indication: Primary adrenal insufficiency
     Dosage: 10 MILLIGRAM, QD
     Route: 065
  5. FLUDROCORTISONE [Suspect]
     Active Substance: FLUDROCORTISONE
     Indication: Primary adrenal insufficiency
     Dosage: 0.1 MILLIGRAM, QD
     Route: 065
  6. HYDRALAZINE [Suspect]
     Active Substance: HYDRALAZINE HYDROCHLORIDE
     Indication: Pre-eclampsia
     Dosage: 5 MILLIGRAM
     Route: 042
  7. MAGNESIUM SULFATE [Suspect]
     Active Substance: MAGNESIUM SULFATE
     Indication: Seizure prophylaxis
     Dosage: 2G/H
     Route: 042
  8. OXYTOCIN [Concomitant]
     Active Substance: OXYTOCIN
     Indication: Procedural haemorrhage
     Dosage: 20 UNIT
     Route: 042
  9. OXYTOCIN [Concomitant]
     Active Substance: OXYTOCIN
     Dosage: 10 UNIT
     Route: 015
  10. CARBOPROST [Concomitant]
     Active Substance: CARBOPROST
     Indication: Procedural haemorrhage
     Dosage: 250 MICROGRAM
     Route: 030

REACTIONS (2)
  - Drug ineffective [Unknown]
  - Exposure during pregnancy [Unknown]
